FAERS Safety Report 8917397 (Version 1)
Quarter: 2012Q4

REPORT INFORMATION
  Report Type: 
  Country: US (occurrence: US)
  Receive Date: 20121120
  Receipt Date: 20121120
  Transmission Date: 20130627
  Serious: Yes (Other)
  Sender: FDA-Public Use
  Company Number: US-PFIZER INC-2012290660

PATIENT
  Age: 78 Year
  Sex: Male
  Weight: 68.03 kg

DRUGS (5)
  1. CHANTIX [Suspect]
     Indication: SMOKING CESSATION THERAPY
     Dosage: 0.5 mg, 1x/day
     Route: 048
  2. BENAZEPRIL [Concomitant]
     Indication: BLOOD PRESSURE HIGH
     Dosage: UNK
  3. SYMBICORT [Concomitant]
     Indication: LUNG DISORDER
     Dosage: UNK
  4. CRESTOR [Concomitant]
     Indication: HEART DISORDER
     Dosage: UNK
  5. OMEPRAZOLE [Concomitant]
     Indication: GASTROINTESTINAL DISORDER
     Dosage: UNK

REACTIONS (1)
  - Lung disorder [Unknown]
